FAERS Safety Report 5115456-9 (Version None)
Quarter: 2006Q3

REPORT INFORMATION
  Report Type: 
  Country: None (occurrence: None)
  Receive Date: 20060922
  Receipt Date: 20060911
  Transmission Date: 20061208
  Serious: Yes (Hospitalization)
  Sender: FDA-Public Use
  Company Number: TPG2006A00426

PATIENT
  Age: 69 Year
  Sex: Male

DRUGS (7)
  1. ACTOS [Suspect]
     Indication: DIABETES MELLITUS NON-INSULIN-DEPENDENT
     Dosage: SEE IMAGE, PER ORAL
     Route: 048
     Dates: start: 20060112, end: 20060129
  2. ACTOS [Suspect]
     Indication: DIABETES MELLITUS NON-INSULIN-DEPENDENT
     Dosage: SEE IMAGE, PER ORAL
     Route: 048
     Dates: start: 20060130
  3. ENALAPRIL MALEATE [Concomitant]
  4. HYDROCHLOROTHIAZIDE [Concomitant]
  5. METOHEXAL (METOPROLOL TARTRATE) [Concomitant]
  6. SIMVABETA (SIMVASTATIN) [Concomitant]
  7. ASPIRIN [Concomitant]

REACTIONS (3)
  - ANGINA UNSTABLE [None]
  - CAROTID ENDARTERECTOMY [None]
  - TRANSIENT ISCHAEMIC ATTACK [None]
